FAERS Safety Report 14538181 (Version 3)
Quarter: 2018Q1

REPORT INFORMATION
  Report Type: Spontaneous
  Country: JP (occurrence: JP)
  Receive Date: 20180216
  Receipt Date: 20180302
  Transmission Date: 20180509
  Serious: Yes (Other)
  Sender: FDA-Public Use
  Company Number: JP-ASTRAZENECA-2018SE09677

PATIENT
  Age: 25258 Day
  Sex: Female
  Weight: 42 kg

DRUGS (3)
  1. TAGRISSO [Suspect]
     Active Substance: OSIMERTINIB
     Indication: NON-SMALL CELL LUNG CANCER
     Route: 048
     Dates: start: 20170419, end: 20171205
  2. TAGRISSO [Suspect]
     Active Substance: OSIMERTINIB
     Indication: NON-SMALL CELL LUNG CANCER
     Route: 048
     Dates: start: 20180203
  3. PREDONINE [Concomitant]
     Active Substance: PREDNISOLONE
     Dates: start: 201802

REACTIONS (3)
  - Malignant neoplasm progression [Unknown]
  - Pneumonitis [Recovering/Resolving]
  - Metastases to meninges [Unknown]

NARRATIVE: CASE EVENT DATE: 20171206
